FAERS Safety Report 23299338 (Version 3)
Quarter: 2024Q1

REPORT INFORMATION
  Report Type: Spontaneous
  Country: JP (occurrence: JP)
  Receive Date: 20231215
  Receipt Date: 20240115
  Transmission Date: 20240409
  Serious: Yes (Hospitalization, Other)
  Sender: FDA-Public Use
  Company Number: None

PATIENT

DRUGS (13)
  1. TRELEGY ELLIPTA [Suspect]
     Active Substance: FLUTICASONE FUROATE\UMECLIDINIUM BROMIDE\VILANTEROL TRIFENATATE
     Indication: Asthma
     Dosage: 200 ?G
     Route: 055
     Dates: start: 20231204
  2. AZOSEMIDE [Concomitant]
     Active Substance: AZOSEMIDE
     Dosage: (30) 1T
  3. EDOXABAN TOSYLATE [Concomitant]
     Active Substance: EDOXABAN TOSYLATE
     Dosage: (60) 0.5T
  4. NEXIUM [Concomitant]
     Active Substance: ESOMEPRAZOLE MAGNESIUM
     Dosage: (20) 1C
  5. SAMSCA [Concomitant]
     Active Substance: TOLVAPTAN
     Dosage: (7.5) 0.5T
  6. LASIX [Concomitant]
     Active Substance: FUROSEMIDE
     Dosage: UNK
  7. DAPAGLIFLOZIN [Concomitant]
     Active Substance: DAPAGLIFLOZIN
     Dosage: (10) 1T
  8. SPIRONOLACTONE [Concomitant]
     Active Substance: SPIRONOLACTONE
     Dosage: (25) 1T, ONCE DAILY AFTER BREAKFAST
  9. MIYA-BM [Concomitant]
     Active Substance: CLOSTRIDIUM BUTYRICUM SPORES STRAIN M-55
     Dosage: 3T IN DIVIDE THREE DOSES, AFTER MEALS IN MORNING, AT NOON, IN EVENING
  10. ENTRESTO [Concomitant]
     Active Substance: SACUBITRIL\VALSARTAN
     Dosage: (50) 2T
  11. RAMELTEON [Concomitant]
     Active Substance: RAMELTEON
     Dosage: (8) 1T ONCE AFTER DINNER
  12. INDOMETHACIN [Concomitant]
     Active Substance: INDOMETHACIN
     Dosage: UNK
  13. HEPARIN [Concomitant]
     Active Substance: HEPARIN SODIUM
     Dosage: UNK

REACTIONS (5)
  - Altered state of consciousness [Recovering/Resolving]
  - Thrombosis [Recovering/Resolving]
  - Cerebral infarction [Recovering/Resolving]
  - Cardiac failure [Recovering/Resolving]
  - Generalised oedema [Recovering/Resolving]

NARRATIVE: CASE EVENT DATE: 20231204
